FAERS Safety Report 5717811-2 (Version None)
Quarter: 2008Q2

REPORT INFORMATION
  Report Type: 
  Country: None (occurrence: None)
  Receive Date: 20080425
  Receipt Date: 20070601
  Transmission Date: 20081010
  Serious: No
  Sender: FDA-Public Use
  Company Number: US-ABBOTT-07P-163-0371186-00

PATIENT
  Sex: Female
  Weight: 47.67 kg

DRUGS (3)
  1. ERYTHROMYCIN [Suspect]
     Indication: DENTAL TREATMENT
     Route: 048
     Dates: start: 20070531, end: 20070601
  2. ENTEX CAP [Concomitant]
     Indication: NASAL DECONGESTION THERAPY
     Route: 048
  3. IBUPROFEN [Concomitant]
     Indication: PAIN
     Route: 048

REACTIONS (1)
  - DIARRHOEA [None]
